FAERS Safety Report 18275777 (Version 1)
Quarter: 2020Q3

REPORT INFORMATION
  Report Type: Other
  Country: CA (occurrence: CA)
  Receive Date: 20200917
  Receipt Date: 20200917
  Transmission Date: 20201103
  Serious: Yes (Hospitalization, Other)
  Sender: FDA-Public Use
  Company Number: CA-CHANGZHOU PHARMACEUTICAL FACTORY-2090831

PATIENT
  Age: 76 Year
  Sex: Female

DRUGS (7)
  1. CANAGLIFLOZIN [Interacting]
     Active Substance: CANAGLIFLOZIN
     Route: 065
  2. RISEDRONIC?ACID [Concomitant]
     Active Substance: RISEDRONIC ACID
     Route: 065
  3. METFORMIN [Concomitant]
     Active Substance: METFORMIN HYDROCHLORIDE
     Route: 065
  4. BISOPROLOL. [Concomitant]
     Active Substance: BISOPROLOL FUMARATE
     Route: 065
  5. ASPIRIN. [Concomitant]
     Active Substance: ASPIRIN
     Route: 065
  6. LEVOTHYROXINE?SODIUM [Concomitant]
     Route: 065
  7. ROSUVASTATIN CALCIUM. [Suspect]
     Active Substance: ROSUVASTATIN CALCIUM
     Indication: CORONARY ARTERY DISEASE
     Route: 065

REACTIONS (3)
  - Rhabdomyolysis [Recovering/Resolving]
  - Hepatocellular injury [Recovering/Resolving]
  - Drug interaction [Recovering/Resolving]
